FAERS Safety Report 6726075-2 (Version None)
Quarter: 2010Q2

REPORT INFORMATION
  Report Type: 
  Country: None (occurrence: None)
  Receive Date: 20100514
  Receipt Date: 20100507
  Transmission Date: 20101027
  Serious: Yes (Other)
  Sender: FDA-Public Use
  Company Number: US-B.I. PHARMACEUTICALS,INC./RIDGEFIELD-2010-BP-05254BP

PATIENT
  Age: 25 Year
  Sex: Male

DRUGS (1)
  1. VIRAMUNE [Suspect]
     Indication: HIV TEST POSITIVE
     Route: 048
     Dates: start: 20100201, end: 20100501

REACTIONS (2)
  - JAUNDICE [None]
  - MALAISE [None]
